FAERS Safety Report 5816276-X (Version None)
Quarter: 2008Q3

REPORT INFORMATION
  Report Type: 
  Country: None (occurrence: None)
  Receive Date: 20080717
  Receipt Date: 20070609
  Transmission Date: 20090109
  Serious: Yes (Other)
  Sender: FDA-Public Use
  Company Number: 2007SP011661

PATIENT
  Sex: Female

DRUGS (1)
  1. INTEGRILIN [Suspect]
     Indication: DRUG USE FOR UNKNOWN INDICATION
     Dosage: IV
     Route: 042

REACTIONS (4)
  - DRUG ADMINISTRATION ERROR [None]
  - EPISTAXIS [None]
  - EYE HAEMORRHAGE [None]
  - PULMONARY HAEMORRHAGE [None]
